FAERS Safety Report 6031246-7 (Version None)
Quarter: 2008Q4

REPORT INFORMATION
  Report Type: 
  Country: None (occurrence: None)
  Receive Date: 20081224
  Receipt Date: 20081119
  Transmission Date: 20090506
  Serious: No
  Sender: FDA-Public Use
  Company Number: 2008PV037163

PATIENT
  Sex: Male

DRUGS (3)
  1. SYMLINPEN 120 (PRAMLINTIDE ACETATE) PEN-INJECTOR (1.0 MG/ML) [Suspect]
     Indication: TYPE 1 DIABETES MELLITUS
     Dosage: 60 MCG;TID;SC ; 15 MCG;TID;SC
     Route: 058
     Dates: start: 20081001, end: 20080101
  2. SYMLINPEN 120 (PRAMLINTIDE ACETATE) PEN-INJECTOR (1.0 MG/ML) [Suspect]
     Indication: TYPE 1 DIABETES MELLITUS
     Dosage: 60 MCG;TID;SC ; 15 MCG;TID;SC
     Route: 058
     Dates: start: 20080101
  3. NOVOLOG [Concomitant]

REACTIONS (1)
  - BLOOD GLUCOSE INCREASED [None]
